FAERS Safety Report 9417460 (Version 1)
Quarter: 2013Q3

REPORT INFORMATION
  Report Type: Spontaneous
  Country: AU (occurrence: AU)
  Receive Date: 20130724
  Receipt Date: 20130724
  Transmission Date: 20140515
  Serious: Yes (Hospitalization)
  Sender: FDA-Public Use
  Company Number: AU-009507513-1307AUS007830

PATIENT
  Age: 4 Year
  Sex: Male

DRUGS (1)
  1. CLARATYNE [Suspect]
     Dosage: 5 MG DOSE AT 1 PM, 5 MG DOSE AT 8 PM, DD
     Route: 048
     Dates: start: 201110

REACTIONS (3)
  - Upper respiratory tract infection [Unknown]
  - Overdose [Unknown]
  - Inappropriate schedule of drug administration [Unknown]
